FAERS Safety Report 4316455-7 (Version None)
Quarter: 2004Q1

REPORT INFORMATION
  Report Type: 
  Country: None (occurrence: None)
  Receive Date: 20040311
  Receipt Date: 20040224
  Transmission Date: 20041129
  Serious: No
  Sender: FDA-Public Use
  Company Number: F04200400048

PATIENT
  Age: 79 Year
  Sex: Male

DRUGS (2)
  1. UROXATRAL [Suspect]
     Indication: BENIGN PROSTATIC HYPERPLASIA
     Dosage: 10 MG QD ORAL
     Route: 048
     Dates: start: 20031125, end: 20031126
  2. ASS 100 (ACETYLSALICYLIC ACID) [Concomitant]

REACTIONS (2)
  - ANGINA PECTORIS [None]
  - BLOOD PRESSURE DECREASED [None]
